FAERS Safety Report 9678201 (Version 1)
Quarter: 2013Q4

REPORT INFORMATION
  Report Type: Spontaneous
  Country: US (occurrence: US)
  Receive Date: 20131108
  Receipt Date: 20131108
  Transmission Date: 20140711
  Serious: No
  Sender: FDA-Public Use
  Company Number: US-UPSHER-SMITH LABORATORIES, INC.-13000239

PATIENT
  Age: 85 Year
  Sex: Male

DRUGS (5)
  1. JANTOVEN [Suspect]
     Indication: CARDIOVASCULAR DISORDER
     Dosage: 3 MG, QD
     Route: 048
     Dates: start: 201201
  2. LEVOTHYROXINE [Concomitant]
     Dosage: UNK
     Dates: start: 201201
  3. LORATADINE [Concomitant]
     Dosage: UNK
     Dates: start: 201201
  4. LISINOPRIL [Concomitant]
     Dosage: UNK
     Dates: start: 201201
  5. METOPROLOL [Concomitant]
     Dosage: UNK
     Dates: start: 201201

REACTIONS (1)
  - Skin discolouration [Not Recovered/Not Resolved]
